FAERS Safety Report 6102440-1 (Version None)
Quarter: 2009Q1

REPORT INFORMATION
  Report Type: 
  Country: None (occurrence: None)
  Receive Date: 20090304
  Receipt Date: 20090219
  Transmission Date: 20090719
  Serious: Yes (Hospitalization, Other)
  Sender: FDA-Public Use
  Company Number: US-ROCHE-615737

PATIENT
  Sex: Male
  Weight: 72.6 kg

DRUGS (2)
  1. PEG-INTERFERON ALFA 2A (RO 25-8310) [Suspect]
     Route: 058
     Dates: start: 20081103, end: 20090209
  2. RIBAVIRIN [Suspect]
     Route: 048
     Dates: start: 20081103, end: 20090217

REACTIONS (2)
  - HEART DISEASE CONGENITAL [None]
  - SYNCOPE [None]
